FAERS Safety Report 18911840 (Version 6)
Quarter: 2024Q4

REPORT INFORMATION
  Report Type: Report from Study
  Country: JP (occurrence: JP)
  Receive Date: 20210219
  Receipt Date: 20241223
  Transmission Date: 20250114
  Serious: Yes (Death, Life-Threatening, Hospitalization, Other)
  Sender: BIOGEN
  Company Number: JP-BIOGEN-2021BI00980731

PATIENT
  Age: 12 Year
  Sex: Male
  Weight: 28 kg

DRUGS (12)
  1. SPINRAZA [Suspect]
     Active Substance: NUSINERSEN
     Indication: Spinal muscular atrophy
     Route: 050
     Dates: start: 20180620, end: 20180620
  2. SPINRAZA [Suspect]
     Active Substance: NUSINERSEN
     Route: 050
     Dates: start: 20180718, end: 20180718
  3. SPINRAZA [Suspect]
     Active Substance: NUSINERSEN
     Route: 050
     Dates: start: 20180912
  4. MIDAZOLAM [Concomitant]
     Active Substance: MIDAZOLAM
     Indication: Anaesthesia procedure
     Dosage: 4 MG-7 MG
     Route: 050
     Dates: start: 20180620, end: 20180912
  5. MIDAZOLAM [Concomitant]
     Active Substance: MIDAZOLAM
     Route: 050
     Dates: start: 20190313, end: 20190911
  6. MIDAZOLAM [Concomitant]
     Active Substance: MIDAZOLAM
     Route: 050
     Dates: start: 20200311
  7. MIDAZOLAM [Concomitant]
     Active Substance: MIDAZOLAM
     Route: 050
     Dates: start: 20210207, end: 20210207
  8. ATROPINE SULFATE [Concomitant]
     Active Substance: ATROPINE SULFATE
     Indication: Anaesthesia procedure
     Dosage: 0.2 MG-0.25 MG
     Route: 050
     Dates: start: 20180620, end: 20180912
  9. ATROPINE SULFATE [Concomitant]
     Active Substance: ATROPINE SULFATE
     Route: 050
     Dates: start: 20190313, end: 20190911
  10. PULMICORT TURBUHALER [Concomitant]
     Active Substance: BUDESONIDE
     Indication: Asthma
     Route: 050
     Dates: end: 20210208
  11. PRANLUKAST [Concomitant]
     Active Substance: PRANLUKAST
     Indication: Asthma
     Route: 050
     Dates: end: 20210208
  12. THEO-DUR [Concomitant]
     Active Substance: THEOPHYLLINE ANHYDROUS
     Indication: Asthma
     Route: 050
     Dates: end: 20210208

REACTIONS (13)
  - Brain herniation [Fatal]
  - Encephalomalacia [Fatal]
  - Brain oedema [Fatal]
  - Blood pressure decreased [Fatal]
  - Asthma [Recovered/Resolved]
  - Pneumonia [Recovered/Resolved]
  - Atelectasis [Recovered/Resolved]
  - Seizure [Recovered/Resolved]
  - Pneumonia [Unknown]
  - Pituitary infarction [Unknown]
  - Diabetes insipidus [Unknown]
  - Kidney congestion [Unknown]
  - Renal tubular dysfunction [Unknown]

NARRATIVE: CASE EVENT DATE: 20210119
